FAERS Safety Report 8853729 (Version 2)
Quarter: 2013Q1

REPORT INFORMATION
  Report Type: Spontaneous
  Country: US (occurrence: US)
  Receive Date: 20121022
  Receipt Date: 20130130
  Transmission Date: 20140127
  Serious: No
  Sender: FDA-Public Use
  Company Number: US-009507513-1210USA008629

PATIENT
  Sex: Female
  Weight: 90.7 kg

DRUGS (1)
  1. IMPLANON [Suspect]
     Indication: CONTRACEPTION
     Dosage: 1 ROD UP TO 3 YEARS
     Route: 059
     Dates: start: 201204

REACTIONS (15)
  - Headache [Unknown]
  - Dizziness [Unknown]
  - Metrorrhagia [Unknown]
  - Abdominal distension [Unknown]
  - Acne [Unknown]
  - Chest pain [Unknown]
  - Pain [Unknown]
  - Menorrhagia [Unknown]
  - Asthenia [Unknown]
  - Amenorrhoea [Recovered/Resolved]
  - Pollakiuria [Unknown]
  - Mood swings [Unknown]
  - Loss of libido [Unknown]
  - Fatigue [Unknown]
  - Depressed mood [Unknown]
